FAERS Safety Report 15550841 (Version 1)
Quarter: 2018Q4

REPORT INFORMATION
  Report Type: Spontaneous
  Country: US (occurrence: US)
  Receive Date: 20181025
  Receipt Date: 20181025
  Transmission Date: 20190205
  Serious: Yes (Other)
  Sender: FDA-Public Use
  Company Number: None

PATIENT
  Age: 55 Year
  Sex: Female
  Weight: 117 kg

DRUGS (7)
  1. OMEPRAZOLE. [Concomitant]
     Active Substance: OMEPRAZOLE
  2. MIRALAX [Concomitant]
     Active Substance: POLYETHYLENE GLYCOL 3350
  3. ROPINIROLE HCL TAB 3MG [Suspect]
     Active Substance: ROPINIROLE HYDROCHLORIDE
     Indication: RESTLESS LEGS SYNDROME
     Dosage: ?          QUANTITY:1 TABLET(S);?
     Route: 048
     Dates: start: 20140901, end: 20181010
  4. GABAPENTIN. [Concomitant]
     Active Substance: GABAPENTIN
  5. BARIATRIC FUSION COMPLETE VITAMIN [Concomitant]
  6. TRAZODONE [Concomitant]
     Active Substance: TRAZODONE HYDROCHLORIDE
  7. SLEEP APNEA MACHINE [Concomitant]

REACTIONS (5)
  - Wrong technique in product usage process [None]
  - Crying [None]
  - Abdominal pain upper [None]
  - Blood potassium decreased [None]
  - Skin burning sensation [None]

NARRATIVE: CASE EVENT DATE: 20181010
